FAERS Safety Report 25039696 (Version 1)
Quarter: 2025Q1

REPORT INFORMATION
  Report Type: Spontaneous
  Country: US (occurrence: None)
  Receive Date: 20250305
  Receipt Date: 20250305
  Transmission Date: 20250408
  Serious: Yes (Other)
  Sender: Alvotech
  Company Number: US-ALVOTECHPMS-2025-ALVOTECHPMS-003218

PATIENT
  Sex: Female

DRUGS (1)
  1. SIMLANDI [Suspect]
     Active Substance: ADALIMUMAB-RYVK
     Indication: Product used for unknown indication
     Route: 065

REACTIONS (7)
  - Vision blurred [Unknown]
  - Haematochezia [Unknown]
  - Dizziness [Unknown]
  - Injection site pain [Unknown]
  - Injection site pain [Unknown]
  - Ear haemorrhage [Unknown]
  - Haematuria [Unknown]
